FAERS Safety Report 4655551-1 (Version None)
Quarter: 2005Q2

REPORT INFORMATION
  Report Type: 
  Country: None (occurrence: None)
  Receive Date: 20050505
  Receipt Date: 20050422
  Transmission Date: 20051028
  Serious: Yes (Hospitalization, Other)
  Sender: FDA-Public Use
  Company Number: 2004048907

PATIENT
  Age: 51 Year
  Sex: Female

DRUGS (66)
  1. NEURONTIN [Suspect]
     Indication: BIPOLAR DISORDER
     Dosage: 2000 MG (400 MG 5 IN 1 D)
     Dates: start: 19990318, end: 20020201
  2. CEPHALEXIN [Concomitant]
  3. WARFARIN SODIUM [Concomitant]
  4. PHENYLPROPANOLAMINE HCL [Concomitant]
  5. CYPROHEPTADINE HYDROCHLORIDE (CYPROHEPATDINE HYDROCHLORIDE) [Concomitant]
  6. YOHIMBINE (YOHIMBINE) [Concomitant]
  7. CETIRIZINE HCL [Concomitant]
  8. ADAPALENE (ADAPALENE) [Concomitant]
  9. MELOXICAM [Concomitant]
  10. ARIPRAZOLE (ARIPRAZOLE) [Concomitant]
  11. KETOROLAC TROMETHAMINE [Concomitant]
  12. ISOCOM (DICLORALPHENAZONE, ISOMETHEPTENE MUCATE, PARACETAMOL) [Concomitant]
  13. CLONAZEPAM [Concomitant]
  14. OLANZAPINE (OLANZAPINE) [Concomitant]
  15. ZOLPIDEM TARTRATE [Concomitant]
  16. FLUOXETINE HCL [Concomitant]
  17. RALOXIFENE HCL [Concomitant]
  18. LITHIUM CARBONATE [Concomitant]
  19. TRAMADOL HCL [Concomitant]
  20. ATENOLOL [Concomitant]
  21. TRAZODONE HCL [Concomitant]
  22. PROPACET 100 [Concomitant]
  23. ESTRATEST H.S. [Concomitant]
  24. ESTRADIOL [Concomitant]
  25. VENLAFAXINE HCL [Concomitant]
  26. NEFAZODONE HCL [Concomitant]
  27. ZOLMITRIPTAN (ZOLMITRIPTAN) [Concomitant]
  28. SODIUM FLUORIDE (SODIUM FLUORIDE) [Concomitant]
  29. AMOXICILLIN [Concomitant]
  30. MEPERIDINE W/PROMETHAZINE (PETHIDINE, PROMETHAZINE) [Concomitant]
  31. AZITHROMYCIN [Concomitant]
  32. AQUATAB C (DEXTROMETHORPHAN, GUAIFENESIN, PHENYLPROPANOLAMINE) [Concomitant]
  33. PREDNISONE [Concomitant]
  34. PRAVASTATIN SODIUM [Concomitant]
  35. CLINDAMYCIN [Concomitant]
  36. CHLORHEXIDINE (CHLORHEXIDINE) [Concomitant]
  37. VICODIN [Concomitant]
  38. DOCUSATE SODIUM (DOCUSATE SODIUM) [Concomitant]
  39. RISPERDAL [Concomitant]
  40. MIRTAZAPINE [Concomitant]
  41. BUPROPION HYDROCHLORIDE [Concomitant]
  42. PROPRANOLOL HYDROCHLORIDE [Concomitant]
  43. SUMATRIPTAN SUCCINATE [Concomitant]
  44. METHOCARBAMOL [Concomitant]
  45. NAPROXEN [Concomitant]
  46. NARINE REPETABE (LORATADINE, PSEUDOEPHEDRINE SULFATE) [Concomitant]
  47. TEMAZEPAM [Concomitant]
  48. QUETIAPINE FUMARATE [Concomitant]
  49. ROBITUSSIN A-C /OLD FORM/ (CODEINE PHOSPHATE, GUAIFENESIN, PHENIRAMINE [Concomitant]
  50. FLURAZEPAM HYDROCHLORIDE (FLURAZEPAM HYDROCHLORIDE) [Concomitant]
  51. MOMETASONE FUROATE [Concomitant]
  52. ADAPALENE (ADAPALENE) [Concomitant]
  53. RONATIC (CHLORPHENAMINE TANNATE, MEPYRAMINE TANNATE, PHENYLEPHRINE TAN [Concomitant]
  54. MODAFINIL [Concomitant]
  55. TIZANIDINE HYDROCHLORIDE (TIZANADINE HYDROCHLORIDE) [Concomitant]
  56. CONJUGATED ESTROGENS [Concomitant]
  57. ESTRADIOL [Concomitant]
  58. TIAGABINE HYDROCHLORIDE (TIAGABINE HYDROCHLORIDE) [Concomitant]
  59. SILDENAFIL CITRATE (SILDENAFIL CITRATE) [Concomitant]
  60. BUTORPHANOL TARATRATE [Concomitant]
  61. TRIMETHOBENZAMIDE HYDROCHLORIDE (TRIMETHOBENZAMIDE HYDROCHLORIDE) [Concomitant]
  62. LITHIUM CARBONATE [Concomitant]
  63. VALPROATE SODIUM [Concomitant]
  64. BECLOMETHASONE DIPROPIONATE [Concomitant]
  65. CLAVULIN (AMOXICILLIN TRIHYDRATE, CLAVULANATE POTASSIUM) [Concomitant]
  66. MIDRID (DICHLORALPHENAZONE, ISOMETHEPTENE, PARACETAMOL) [Concomitant]

REACTIONS (69)
  - ABDOMINAL DISTENSION [None]
  - ABDOMINAL PAIN [None]
  - ABNORMAL BEHAVIOUR [None]
  - AGITATION [None]
  - ANGER [None]
  - ANXIETY [None]
  - ARTERIAL INJURY [None]
  - ATRIAL FIBRILLATION [None]
  - BILIARY TRACT DISORDER [None]
  - BLOOD CALCIUM DECREASED [None]
  - BODY DYSMORPHIC DISORDER [None]
  - CHEST PAIN [None]
  - COGNITIVE DISORDER [None]
  - CONDITION AGGRAVATED [None]
  - CONFUSIONAL STATE [None]
  - COUGH [None]
  - CRYING [None]
  - DEPENDENCE ON RESPIRATOR [None]
  - DEPRESSED MOOD [None]
  - DEPRESSION [None]
  - DIAPHRAGMATIC INJURY [None]
  - DRUG SCREEN POSITIVE [None]
  - DYSPHAGIA [None]
  - FAECALOMA [None]
  - FEELING ABNORMAL [None]
  - FEELING GUILTY [None]
  - GUN SHOT WOUND [None]
  - HAEMATOCRIT DECREASED [None]
  - HAEMOGLOBIN DECREASED [None]
  - HAEMOTHORAX [None]
  - HEPATIC TRAUMA [None]
  - HYPERNATRAEMIA [None]
  - HYPOTENSION [None]
  - IMPAIRED WORK ABILITY [None]
  - INJURY [None]
  - INSOMNIA [None]
  - INTERCOSTAL NEURALGIA [None]
  - KLEPTOMANIA [None]
  - LUNG DISORDER [None]
  - MALNUTRITION [None]
  - MANIA [None]
  - MENTAL DISORDER [None]
  - NEGATIVE THOUGHTS [None]
  - NEPHROGENIC DIABETES INSIPIDUS [None]
  - OBSESSIVE-COMPULSIVE DISORDER [None]
  - OFF LABEL USE [None]
  - PAIN [None]
  - PERICARDIAL EFFUSION [None]
  - PERITONEAL DISORDER [None]
  - PLEURAL EFFUSION [None]
  - PLEURITIC PAIN [None]
  - PNEUMATOSIS CYSTOIDES INTESTINALIS [None]
  - PNEUMONIA [None]
  - PNEUMOTHORAX [None]
  - POST PROCEDURAL COMPLICATION [None]
  - POSTOPERATIVE WOUND COMPLICATION [None]
  - PROCEDURAL COMPLICATION [None]
  - PSYCHIATRIC SYMPTOM [None]
  - PULMONARY EMBOLISM [None]
  - RESPIRATORY DISTRESS [None]
  - RESPIRATORY FAILURE [None]
  - SCAR [None]
  - SEDATION [None]
  - SELF ESTEEM DECREASED [None]
  - SUICIDAL IDEATION [None]
  - SUICIDE ATTEMPT [None]
  - TACHYPNOEA [None]
  - TRAUMATIC SHOCK [None]
  - VENOUS INJURY [None]
